FAERS Safety Report 10750419 (Version 2)
Quarter: 2015Q1

REPORT INFORMATION
  Report Type: Spontaneous
  Country: MX (occurrence: MX)
  Receive Date: 20150130
  Receipt Date: 20150212
  Transmission Date: 20150721
  Serious: Yes (Other)
  Sender: FDA-Public Use
  Company Number: PHHY2015MX010537

PATIENT
  Sex: Female

DRUGS (5)
  1. CARBAMAZEPINE. [Concomitant]
     Active Substance: CARBAMAZEPINE
     Indication: PRODUCT USED FOR UNKNOWN INDICATION
     Dosage: 3 DF, QD
     Route: 065
  2. DIOVAN [Suspect]
     Active Substance: VALSARTAN
     Indication: EYE DISORDER
     Dosage: 0.5 DF, QD
     Route: 065
  3. DIOVAN [Suspect]
     Active Substance: VALSARTAN
     Indication: PROPHYLAXIS
  4. ASPIRINA [Suspect]
     Active Substance: ASPIRIN
     Indication: EYE DISORDER
     Dosage: 1 DF, QD
     Route: 065
  5. CALTRATE WITH VITAMIN D [Concomitant]
     Active Substance: CALCIUM CARBONATE\VITAMIN D
     Indication: PRODUCT USED FOR UNKNOWN INDICATION
     Dosage: 1 DF, QD
     Route: 065

REACTIONS (6)
  - Cataract [Not Recovered/Not Resolved]
  - Hearing impaired [Not Recovered/Not Resolved]
  - Retinal infarction [Not Recovered/Not Resolved]
  - Wrong technique in drug usage process [Unknown]
  - Product use issue [Unknown]
  - Visual impairment [Not Recovered/Not Resolved]
